FAERS Safety Report 18065365 (Version 1)
Quarter: 2020Q3

REPORT INFORMATION
  Report Type: Spontaneous
  Country: FR (occurrence: FR)
  Receive Date: 20200724
  Receipt Date: 20200724
  Transmission Date: 20201103
  Serious: Yes (Hospitalization, Other)
  Sender: FDA-Public Use
  Company Number: FR-BRISTOL-MYERS SQUIBB COMPANY-BMS-2020-057919

PATIENT
  Age: 96 Year
  Sex: Female

DRUGS (1)
  1. ELIQUIS [Suspect]
     Active Substance: APIXABAN
     Indication: PRODUCT USED FOR UNKNOWN INDICATION
     Dosage: 2 DOSAGE FORM, PER DAY
     Route: 048
     Dates: start: 20200428, end: 20200615

REACTIONS (5)
  - Product dispensing error [Recovered/Resolved]
  - Overdose [Recovered/Resolved]
  - Melaena [Recovering/Resolving]
  - Anaemia [Recovering/Resolving]
  - Wrong strength [Recovered/Resolved]

NARRATIVE: CASE EVENT DATE: 20200428
